FAERS Safety Report 9922971 (Version 1)
Quarter: 2014Q1

REPORT INFORMATION
  Report Type: Spontaneous
  Country: US (occurrence: US)
  Receive Date: 20140225
  Receipt Date: 20140225
  Transmission Date: 20141002
  Serious: No
  Sender: FDA-Public Use
  Company Number: US-AMGEN-USASP2013067643

PATIENT
  Age: 56 Year
  Sex: Male
  Weight: 83.9 kg

DRUGS (5)
  1. ENBREL [Suspect]
     Indication: RHEUMATOID ARTHRITIS
     Dosage: 50 MG, QWK
     Route: 058
  2. PREDNISONE [Concomitant]
     Dosage: 1 MG, UNK
  3. CALCIUM [Concomitant]
     Dosage: CALCIUM 500
  4. CELEBREX [Concomitant]
     Dosage: 50 MG, UNK
  5. METOPROLOL [Concomitant]
     Dosage: 25 MG ER, UNK

REACTIONS (1)
  - Therapeutic response decreased [Unknown]
